FAERS Safety Report 7581428-8 (Version None)
Quarter: 2011Q2

REPORT INFORMATION
  Report Type: 
  Country: None (occurrence: None)
  Receive Date: 20110629
  Receipt Date: 20110615
  Transmission Date: 20111010
  Serious: Yes (Hospitalization, Other)
  Sender: FDA-Public Use
  Company Number: PHHY2011DE42851

PATIENT
  Sex: Male
  Weight: 72 kg

DRUGS (10)
  1. BISOPROLOL FUMARATE [Concomitant]
     Dosage: 1 DF, QD
  2. APROVEL [Concomitant]
     Dosage: 1 DF, QD
  3. SIMVASTATIN [Concomitant]
     Dosage: 1 DF, QD
     Dates: end: 20100823
  4. INSULIN [Concomitant]
  5. MOXONIDINE [Concomitant]
     Dosage: 1 DF, BID
  6. XIPAMIDE [Concomitant]
     Dosage: 1 DF, QD
  7. ASPIRIN [Concomitant]
     Dosage: 1 DF, QD
  8. BISOPROLOL FUMARATE [Concomitant]
     Dosage: 1 DF, QD
  9. RASILEZ [Suspect]
     Indication: HYPERTENSION
     Dosage: 300 MG, UNK
     Route: 048
     Dates: start: 20091201, end: 20100802
  10. IRBESARTAN + HYDROCHLOROTHIAZIDE [Concomitant]
     Dosage: 1 DF, QD

REACTIONS (26)
  - ASTHENIA [None]
  - MYOGLOBIN BLOOD INCREASED [None]
  - HEPATITIS TOXIC [None]
  - HEPATITIS [None]
  - ALANINE AMINOTRANSFERASE INCREASED [None]
  - HYPONATRAEMIA [None]
  - SYNCOPE [None]
  - RENAL DISORDER [None]
  - BLOOD ALKALINE PHOSPHATASE INCREASED [None]
  - HEPATIC STEATOSIS [None]
  - BLOOD LACTATE DEHYDROGENASE INCREASED [None]
  - ASPARTATE AMINOTRANSFERASE INCREASED [None]
  - INTERNATIONAL NORMALISED RATIO INCREASED [None]
  - DIZZINESS [None]
  - NAUSEA [None]
  - TACHYARRHYTHMIA [None]
  - GAMMA-GLUTAMYLTRANSFERASE INCREASED [None]
  - BLOOD BILIRUBIN INCREASED [None]
  - BRADYCARDIA [None]
  - GENERAL PHYSICAL HEALTH DETERIORATION [None]
  - BLOOD ALBUMIN DECREASED [None]
  - RHABDOMYOLYSIS [None]
  - BLOOD CREATINE PHOSPHOKINASE INCREASED [None]
  - PROTEIN TOTAL DECREASED [None]
  - PANCREAS LIPOMATOSIS [None]
  - DEPRESSED MOOD [None]
